FAERS Safety Report 10530588 (Version 1)
Quarter: 2014Q4

REPORT INFORMATION
  Report Type: Spontaneous
  Country: US (occurrence: None)
  Receive Date: 20141020
  Receipt Date: 20141020
  Transmission Date: 20150528
  Serious: Yes (Disabling)
  Sender: FDA-Public Use
  Company Number: None

PATIENT
  Age: 33 Year
  Sex: Male
  Weight: 81.65 kg

DRUGS (2)
  1. ASMANEX [Suspect]
     Active Substance: MOMETASONE FUROATE
     Indication: ASTHMA
     Dosage: 1 INHALATION
     Route: 055
     Dates: start: 20140731, end: 20141017
  2. ASMANEX [Suspect]
     Active Substance: MOMETASONE FUROATE
     Indication: HOUSE DUST ALLERGY
     Dosage: 1 INHALATION
     Route: 055
     Dates: start: 20140731, end: 20141017

REACTIONS (5)
  - Malaise [None]
  - Device related infection [None]
  - Fungal infection [None]
  - Cough [None]
  - Dyspnoea [None]

NARRATIVE: CASE EVENT DATE: 20141017
